FAERS Safety Report 19941746 (Version 1)
Quarter: 2021Q4

REPORT INFORMATION
  Report Type: Spontaneous
  Country: BR (occurrence: BR)
  Receive Date: 20211011
  Receipt Date: 20211011
  Transmission Date: 20220304
  Serious: Yes (Other)
  Sender: FDA-Public Use
  Company Number: 2021A762935

PATIENT
  Sex: Female
  Weight: 72 kg

DRUGS (6)
  1. IRESSA [Suspect]
     Active Substance: GEFITINIB
     Indication: Lung neoplasm malignant
     Route: 048
  2. XARELTO [Concomitant]
     Active Substance: RIVAROXABAN
  3. PURAN [Concomitant]
     Active Substance: LEVOTHYROXINE SODIUM
  4. FUROSEMIDE [Concomitant]
     Active Substance: FUROSEMIDE
  5. ACETAMINOPHEN AND CODEINE [Concomitant]
     Active Substance: ACETAMINOPHEN\CODEINE PHOSPHATE
  6. METAMIZOLE [Concomitant]
     Active Substance: METAMIZOLE

REACTIONS (1)
  - COVID-19 [Recovered/Resolved]

NARRATIVE: CASE EVENT DATE: 20210101
